FAERS Safety Report 9958957 (Version 1)
Quarter: 2014Q1

REPORT INFORMATION
  Report Type: Report from Study
  Country: US (occurrence: US)
  Receive Date: 20140305
  Receipt Date: 20140305
  Transmission Date: 20141002
  Serious: No
  Sender: FDA-Public Use
  Company Number: US-ABBVIE-13P-163-1104404-00

PATIENT
  Age: 42 Year
  Sex: Female

DRUGS (6)
  1. HUMIRA [Suspect]
     Indication: CROHN^S DISEASE
     Dates: start: 20130309
  2. HUMIRA [Suspect]
  3. PENTASA [Concomitant]
     Indication: CROHN^S DISEASE
     Dosage: 8 PILLS
  4. 6-MP [Concomitant]
     Indication: CROHN^S DISEASE
     Dosage: 2 PILLS
  5. FLEXERIL [Concomitant]
     Indication: MUSCLE RELAXANT THERAPY
  6. FIBROMYALGIA [Concomitant]
     Indication: FIBROMYALGIA

REACTIONS (9)
  - Gastrointestinal inflammation [Recovering/Resolving]
  - Infrequent bowel movements [Not Recovered/Not Resolved]
  - Abdominal pain [Recovering/Resolving]
  - Dermatitis [Recovering/Resolving]
  - Arthralgia [Recovering/Resolving]
  - Crohn^s disease [Unknown]
  - Impaired work ability [Unknown]
  - Constipation [Unknown]
  - Aphagia [Recovering/Resolving]
